FAERS Safety Report 14614296 (Version 2)
Quarter: 2018Q1

REPORT INFORMATION
  Report Type: Spontaneous
  Country: AU (occurrence: AU)
  Receive Date: 20180308
  Receipt Date: 20180309
  Transmission Date: 20180509
  Serious: Yes (Other)
  Sender: FDA-Public Use
  Company Number: AU-PFIZER INC-2018087145

PATIENT
  Age: 67 Year
  Sex: Female

DRUGS (2)
  1. METHOTREXATE SODIUM. [Suspect]
     Active Substance: METHOTREXATE SODIUM
     Indication: METASTASES TO MENINGES
     Dosage: 12 MG, UNK
     Route: 037
  2. METHOTREXATE SODIUM. [Suspect]
     Active Substance: METHOTREXATE SODIUM
     Indication: BREAST CANCER
     Dosage: 45 MG, UNK (45 MG MTX TOTAL)(FOUR PRIOR INSTILLATIONS)
     Route: 037

REACTIONS (4)
  - Encephalitis toxic [Recovering/Resolving]
  - Device malfunction [Unknown]
  - Neurotoxicity [Recovering/Resolving]
  - Porencephaly [Recovering/Resolving]
